FAERS Safety Report 8517769-7 (Version None)
Quarter: 2012Q3

REPORT INFORMATION
  Report Type: 
  Country: None (occurrence: None)
  Receive Date: 20120718
  Receipt Date: 20120712
  Transmission Date: 20120928
  Serious: Yes (Hospitalization)
  Sender: FDA-Public Use
  Company Number: BE-JNJFOC-20111010170

PATIENT
  Age: 50 Year
  Sex: Male
  Weight: 69 kg

DRUGS (5)
  1. REMICADE [Suspect]
     Route: 042
     Dates: start: 20110531
  2. REMICADE [Suspect]
     Route: 042
     Dates: start: 20120117
  3. REMICADE [Suspect]
     Route: 042
     Dates: start: 20111123
  4. REMICADE [Suspect]
     Indication: COLITIS ULCERATIVE
     Route: 042
     Dates: start: 20110920
  5. REMICADE [Suspect]
     Route: 042
     Dates: start: 20110614

REACTIONS (1)
  - RENAL INFARCT [None]
